FAERS Safety Report 8778713 (Version 1)
Quarter: 2012Q4

REPORT INFORMATION
  Report Type: 
  Country: US (occurrence: US)
  Receive Date: 20120913
  Receipt Date: 20120913
  Transmission Date: 20130627
  Serious: Yes (Hospitalization)
  Sender: FDA-Public Use
  Company Number: US-ROCHE-1113174

PATIENT
  Sex: Male

DRUGS (3)
  1. AVASTIN [Suspect]
     Indication: MALIGNANT URINARY TRACT NEOPLASM
     Route: 065
  2. AVASTIN [Suspect]
     Indication: RENAL CANCER
  3. TARCEVA [Suspect]
     Indication: RENAL CANCER

REACTIONS (1)
  - Disease progression [Unknown]
